FAERS Safety Report 20937669 (Version 1)
Quarter: 2022Q2

REPORT INFORMATION
  Report Type: Spontaneous
  Country: US (occurrence: None)
  Receive Date: 20220608
  Receipt Date: 20220608
  Transmission Date: 20220721
  Serious: No
  Sender: FDA-Public Use
  Company Number: None

PATIENT
  Age: 77 Year
  Sex: Male
  Weight: 78.93 kg

DRUGS (2)
  1. FIRMAGON [Suspect]
     Active Substance: DEGARELIX ACETATE
     Indication: Prostate cancer
     Dosage: FREQUENCY : MONTHLY;?
     Route: 058
     Dates: start: 201708
  2. FIRMAGON [Suspect]
     Active Substance: DEGARELIX ACETATE
     Indication: Osteoporosis

REACTIONS (2)
  - Hypertension [None]
  - Constipation [None]
